FAERS Safety Report 17495305 (Version 1)
Quarter: 2020Q1

REPORT INFORMATION
  Report Type: Spontaneous
  Country: US (occurrence: US)
  Receive Date: 20200303
  Receipt Date: 20200303
  Transmission Date: 20200409
  Serious: No
  Sender: FDA-Public Use
  Company Number: None

PATIENT
  Age: 49 Year
  Sex: Female

DRUGS (1)
  1. FAMCICLOVIR. [Suspect]
     Active Substance: FAMCICLOVIR
     Route: 048
     Dates: start: 20200211, end: 20200303

REACTIONS (2)
  - Nausea [None]
  - Symptom recurrence [None]

NARRATIVE: CASE EVENT DATE: 20200225
